FAERS Safety Report 23742417 (Version 1)
Quarter: 2024Q2

REPORT INFORMATION
  Report Type: Spontaneous
  Country: US (occurrence: None)
  Receive Date: 20240415
  Receipt Date: 20240415
  Transmission Date: 20240715
  Serious: No
  Sender: FDA-Public Use
  Company Number: None

PATIENT
  Sex: Female

DRUGS (1)
  1. NUCALA [Suspect]
     Active Substance: MEPOLIZUMAB
     Dosage: OTHER FREQUENCY : EVERY 28 DAYS;?
     Route: 058
     Dates: start: 202012

REACTIONS (2)
  - Asthma [None]
  - Therapy interrupted [None]
